FAERS Safety Report 9781224 (Version 3)
Quarter: 2013Q4

REPORT INFORMATION
  Report Type: Spontaneous
  Country: US (occurrence: US)
  Receive Date: 20131224
  Receipt Date: 20131227
  Transmission Date: 20140711
  Serious: Yes (Other)
  Sender: FDA-Public Use
  Company Number: CHPA2013US018441

PATIENT
  Age: 55 Year
  Sex: Female

DRUGS (3)
  1. PREVACID 24HR 15MG [Suspect]
     Indication: HELICOBACTER INFECTION
     Dosage: 30 MG, UNK
     Route: 048
  2. PREVACID 24HR 15MG [Suspect]
     Indication: OFF LABEL USE
  3. PREVACID [Suspect]
     Indication: HELICOBACTER INFECTION

REACTIONS (6)
  - Barrett^s oesophagus [Not Recovered/Not Resolved]
  - Hiatus hernia [Not Recovered/Not Resolved]
  - Oesophageal disorder [Unknown]
  - Vomiting [Not Recovered/Not Resolved]
  - Incorrect dose administered [Unknown]
  - Treatment noncompliance [Unknown]
